FAERS Safety Report 9234788 (Version 2)
Quarter: 2013Q2

REPORT INFORMATION
  Report Type: Spontaneous
  Country: JP (occurrence: JP)
  Receive Date: 20130416
  Receipt Date: 20130425
  Transmission Date: 20140414
  Serious: Yes (Other)
  Sender: FDA-Public Use
  Company Number: JP-ELI_LILLY_AND_COMPANY-JP201304002390

PATIENT
  Age: 23 Year
  Sex: Male

DRUGS (1)
  1. CYMBALTA [Suspect]
     Dosage: 20 MG, QD
     Route: 048
     Dates: start: 20130212

REACTIONS (1)
  - Activation syndrome [Recovered/Resolved]
